FAERS Safety Report 8772668 (Version 1)
Quarter: 2012Q4

REPORT INFORMATION
  Report Type: 
  Country: US (occurrence: US)
  Receive Date: 20120905
  Receipt Date: 20120905
  Transmission Date: 20130627
  Serious: Yes (Other)
  Sender: FDA-Public Use
  Company Number: US-BAYER-2012-091474

PATIENT
  Age: 35 Year
  Sex: Female

DRUGS (2)
  1. BETASERON [Suspect]
     Indication: MULTIPLE SCLEROSIS
     Dosage: 0.25 mg, QOD
     Route: 058
     Dates: start: 201110
  2. CORTICOSTEROIDS [Suspect]
     Indication: MULTIPLE SCLEROSIS RELAPSE
     Dosage: UNK
     Route: 042
     Dates: start: 20120717, end: 20120719

REACTIONS (10)
  - Multiple sclerosis relapse [None]
  - Upper respiratory tract infection [Recovering/Resolving]
  - Pyrexia [Recovering/Resolving]
  - Depression [None]
  - Fatigue [None]
  - Asthenia [None]
  - Feeling abnormal [None]
  - Musculoskeletal discomfort [None]
  - Vision blurred [None]
  - Movement disorder [None]
